FAERS Safety Report 22177293 (Version 1)
Quarter: 2023Q2

REPORT INFORMATION
  Report Type: Spontaneous
  Country: US (occurrence: None)
  Receive Date: 20230405
  Receipt Date: 20230405
  Transmission Date: 20230721
  Serious: Yes (Other)
  Sender: FDA-Public Use
  Company Number: None

PATIENT
  Age: 52 Year
  Sex: Male
  Weight: 202.5 kg

DRUGS (1)
  1. PREGABALIN [Suspect]
     Active Substance: PREGABALIN
     Indication: Neuralgia
     Dosage: FREQUENCY : DAILY;?
     Route: 048

REACTIONS (2)
  - Product colour issue [None]
  - Therapeutic product effect decreased [None]

NARRATIVE: CASE EVENT DATE: 20230405
